FAERS Safety Report 9775231 (Version 1)
Quarter: 2013Q4

REPORT INFORMATION
  Report Type: Spontaneous
  Country: US (occurrence: None)
  Receive Date: 20131219
  Receipt Date: 20131219
  Transmission Date: 20140711
  Serious: Yes (Other)
  Sender: FDA-Public Use
  Company Number: None

PATIENT
  Age: 8 Year
  Sex: Male
  Weight: 20.87 kg

DRUGS (1)
  1. STRATTERA [Suspect]
     Indication: ATTENTION DEFICIT/HYPERACTIVITY DISORDER
     Dosage: 30 MG ONCE DAILY TAKEN BY MOUTH
     Route: 048
     Dates: start: 20131007, end: 20131108

REACTIONS (5)
  - Suicidal ideation [None]
  - Aggression [None]
  - Violence-related symptom [None]
  - Self-injurious ideation [None]
  - Aggression [None]
